FAERS Safety Report 13753430 (Version 3)
Quarter: 2017Q3

REPORT INFORMATION
  Report Type: Report from Study
  Country: US (occurrence: US)
  Receive Date: 20170713
  Receipt Date: 20170818
  Transmission Date: 20171127
  Serious: Yes (Hospitalization, Other)
  Sender: FDA-Public Use
  Company Number: PHHO2017US006584

PATIENT
  Age: 26 Year
  Sex: Male
  Weight: 75.4 kg

DRUGS (8)
  1. GSK1120212 [Suspect]
     Active Substance: TRAMETINIB
     Dosage: 34 MG
     Route: 048
     Dates: start: 20170509, end: 20170525
  2. GSK2118436 [Suspect]
     Active Substance: DABRAFENIB
     Indication: MALIGNANT MELANOMA
     Dosage: 150 MG, BID (TOTAL DOSE 9150MG)
     Route: 048
     Dates: start: 20170103, end: 20170114
  3. GSK2118436 [Suspect]
     Active Substance: DABRAFENIB
     Dosage: 100 MG, BID
     Route: 048
     Dates: start: 20170125
  4. GSK2118436 [Suspect]
     Active Substance: DABRAFENIB
     Dosage: UNK
     Route: 048
     Dates: start: 20170606
  5. GSK2118436 [Suspect]
     Active Substance: DABRAFENIB
     Dosage: 3400 MG
     Route: 048
     Dates: start: 20170509, end: 20170525
  6. GSK2118436 [Suspect]
     Active Substance: DABRAFENIB
     Dosage: 150 MG, BID (TOTAL DOSE 9150MG)
     Route: 048
     Dates: start: 20170117
  7. GSK1120212 [Suspect]
     Active Substance: TRAMETINIB
     Indication: MALIGNANT MELANOMA
     Dosage: 2 MG, QD (TOTAL DOSE 84MG)
     Route: 048
     Dates: start: 20170103
  8. GSK1120212 [Suspect]
     Active Substance: TRAMETINIB
     Dosage: UNK
     Route: 048
     Dates: start: 20170606

REACTIONS (2)
  - Seizure [Recovered/Resolved]
  - Pyrexia [Recovered/Resolved]

NARRATIVE: CASE EVENT DATE: 20170114
